FAERS Safety Report 16016010 (Version 1)
Quarter: 2019Q1

REPORT INFORMATION
  Report Type: Spontaneous
  Country: NL (occurrence: NL)
  Receive Date: 20190228
  Receipt Date: 20190228
  Transmission Date: 20190418
  Serious: Yes (Hospitalization)
  Sender: FDA-Public Use
  Company Number: NL-ACCORD-109638

PATIENT
  Age: 62 Year
  Sex: Male
  Weight: 72 kg

DRUGS (6)
  1. ASCAL CARDIO [Concomitant]
     Active Substance: CARBASPIRIN
     Dates: start: 201807
  2. SELOKEEN [Concomitant]
     Active Substance: METOPROLOL
  3. TEMAZEPAM. [Concomitant]
     Active Substance: TEMAZEPAM
  4. SIMVASTATIN. [Suspect]
     Active Substance: SIMVASTATIN
     Indication: HYPERCHOLESTEROLAEMIA
     Dosage: 1 DAY
     Dates: start: 201807, end: 201808
  5. ESOMEPRAZOL SANDOZ [Concomitant]
  6. ALFUZOSIN [Concomitant]
     Active Substance: ALFUZOSIN

REACTIONS (2)
  - Angina unstable [Not Recovered/Not Resolved]
  - Extrasystoles [Not Recovered/Not Resolved]

NARRATIVE: CASE EVENT DATE: 201807
